FAERS Safety Report 5034411-0 (Version None)
Quarter: 2006Q2

REPORT INFORMATION
  Report Type: 
  Country: None (occurrence: None)
  Receive Date: 20060626
  Receipt Date: 20060622
  Transmission Date: 20061013
  Serious: Yes (Death, Life-Threatening, Hospitalization)
  Sender: FDA-Public Use
  Company Number: NL-JNJFOC-20060604649

PATIENT
  Age: 43 Year
  Sex: Male

DRUGS (12)
  1. REOPRO [Suspect]
     Dosage: 12 INFUSION AT 0.125 G/KG/MIN
     Route: 042
  2. REOPRO [Suspect]
     Indication: ACUTE MYOCARDIAL INFARCTION
     Route: 042
  3. ENOXAPARIN SODIUM [Concomitant]
     Dosage: TWICE A DAY FOR 72 HOURS
     Route: 058
  4. UNFRACTIONATED HEPARIN [Concomitant]
     Route: 040
  5. UNFRACTIONATED HEPARIN [Concomitant]
     Indication: ACUTE MYOCARDIAL INFARCTION
     Route: 040
  6. CLOPIDOGREL [Concomitant]
     Route: 042
  7. CLOPIDOGREL [Concomitant]
     Route: 042
  8. ATORVASTATIN CALCIUM [Concomitant]
  9. BISOPROLOL [Concomitant]
  10. RAMIPRIL [Concomitant]
  11. ESCITALOPRAM OXALATE [Concomitant]
  12. ASPIRIN [Concomitant]

REACTIONS (3)
  - CEREBRAL HAEMORRHAGE [None]
  - HYDROCEPHALUS [None]
  - THROMBOCYTOPENIA [None]
